FAERS Safety Report 25715258 (Version 1)
Quarter: 2025Q3

REPORT INFORMATION
  Report Type: Spontaneous
  Country: US (occurrence: None)
  Receive Date: 20250821
  Receipt Date: 20250821
  Transmission Date: 20251021
  Serious: Yes (Other)
  Sender: FDA-CTU
  Company Number: None

PATIENT
  Age: 68 Year
  Sex: Female
  Weight: 104.8 kg

DRUGS (1)
  1. IBRANCE [Suspect]
     Active Substance: PALBOCICLIB
     Indication: Breast cancer female
     Dosage: FREQUENCY : DAILY;?
     Route: 048
     Dates: start: 20240605

REACTIONS (4)
  - Neutrophil count decreased [None]
  - White blood cell count decreased [None]
  - Rhinorrhoea [None]
  - Lacrimation increased [None]

NARRATIVE: CASE EVENT DATE: 20250812
